FAERS Safety Report 9881431 (Version 1)
Quarter: 2014Q1

REPORT INFORMATION
  Report Type: Spontaneous
  Country: US (occurrence: None)
  Receive Date: 20140205
  Receipt Date: 20140205
  Transmission Date: 20141002
  Serious: Yes (Death)
  Sender: FDA-Public Use
  Company Number: IMP_07310_2014

PATIENT
  Age: 54 Year
  Sex: Female

DRUGS (9)
  1. ALPRAZOLAM [Suspect]
     Dosage: DF ORAL
     Route: 048
  2. ACETAMINOPHEN W/HYDROCODONE [Suspect]
     Dosage: DF ORAL
     Route: 048
  3. MUSCLE RELAXANTS [Suspect]
     Dosage: DF ORAL
     Route: 048
  4. VENLAFAXINE [Suspect]
     Dosage: DF ORAL
     Route: 048
  5. MORPHINE [Suspect]
     Dosage: DF ORAL
     Route: 048
  6. DIPHENHYDRAMINE [Suspect]
     Dosage: DF ORAL
     Route: 048
  7. QUETIAPINE [Suspect]
     Dosage: DF ORAL
  8. LAMOTRIGINE [Suspect]
     Dosage: DF ORAL
     Route: 048
  9. GABAPENTIN [Suspect]
     Dosage: DF ORAL
     Route: 048

REACTIONS (5)
  - Poisoning [None]
  - Exposure via ingestion [None]
  - Completed suicide [None]
  - Respiratory arrest [None]
  - Cardiac arrest [None]
